FAERS Safety Report 21418589 (Version 1)
Quarter: 2022Q4

REPORT INFORMATION
  Report Type: Spontaneous
  Country: BR (occurrence: BR)
  Receive Date: 20221006
  Receipt Date: 20221006
  Transmission Date: 20230113
  Serious: Yes (Life-Threatening, Disabling, Other)
  Sender: FDA-Public Use
  Company Number: BR-BoehringerIngelheim-2022-BI-195870

PATIENT
  Sex: Female

DRUGS (1)
  1. CLONIDINE [Suspect]
     Active Substance: CLONIDINE
     Indication: Product used for unknown indication
     Dosage: CLONIDINE HYDROCHLORIDE
     Dates: start: 2010

REACTIONS (6)
  - Infarction [Unknown]
  - Infarction [Unknown]
  - Product availability issue [Unknown]
  - Fall [Unknown]
  - Head injury [Unknown]
  - Memory impairment [Not Recovered/Not Resolved]
